FAERS Safety Report 7154064-5 (Version None)
Quarter: 2010Q4

REPORT INFORMATION
  Report Type: 
  Country: None (occurrence: None)
  Receive Date: 20101213
  Receipt Date: 20101206
  Transmission Date: 20110411
  Serious: Yes (Hospitalization)
  Sender: FDA-Public Use
  Company Number: DE-ABBOTT-10P-062-0676815-00

PATIENT
  Age: 77 Year
  Sex: Male
  Weight: 92 kg

DRUGS (2)
  1. SIXANTONE [Suspect]
     Indication: PROSTATE CANCER
     Route: 058
     Dates: start: 20100604
  2. BICALUTAMIDE [Concomitant]
     Indication: ANTIANDROGEN THERAPY
     Route: 048
     Dates: start: 20100517

REACTIONS (1)
  - URETERIC OBSTRUCTION [None]
